FAERS Safety Report 6149910-8 (Version None)
Quarter: 2009Q2

REPORT INFORMATION
  Report Type: 
  Country: None (occurrence: None)
  Receive Date: 20090409
  Receipt Date: 20090331
  Transmission Date: 20091009
  Serious: Yes (Hospitalization)
  Sender: FDA-Public Use
  Company Number: TR-WYE-H08767709

PATIENT
  Sex: Male

DRUGS (12)
  1. SIROLIMUS [Suspect]
     Indication: PROPHYLAXIS AGAINST TRANSPLANT REJECTION
     Route: 048
     Dates: start: 20040119
  2. MYCOPHENOLATE MOFETIL [Concomitant]
     Indication: PROPHYLAXIS AGAINST TRANSPLANT REJECTION
     Route: 048
     Dates: start: 20040119
  3. METHYLPREDNISOLONE 4MG TAB [Concomitant]
     Indication: PROPHYLAXIS AGAINST TRANSPLANT REJECTION
     Route: 042
     Dates: start: 20040119
  4. DELTACORTRIL [Concomitant]
     Indication: PROPHYLAXIS AGAINST TRANSPLANT REJECTION
     Route: 048
     Dates: start: 20040126
  5. INHIBACE ^ANDREU^ [Concomitant]
     Dosage: UNSPECIFIED
     Dates: start: 20040125
  6. ACETYLSALICYLIC ACID SRT [Concomitant]
     Dosage: UNSPECIFIED
     Dates: start: 20040130
  7. CILAZAPRIL [Concomitant]
     Dosage: UNSPECIFIED
     Dates: start: 20040210
  8. FAMOTIDINE [Concomitant]
     Dosage: UNSPECIFIED
     Dates: start: 20040119
  9. ISONIAZID [Concomitant]
     Dosage: UNSPECIFIED
     Dates: start: 20040119
  10. PANTOPRAZOLE [Concomitant]
     Dosage: UNSPECIFIED
     Dates: start: 20040121
  11. DACLIZUMAB [Concomitant]
     Indication: PROPHYLAXIS AGAINST TRANSPLANT REJECTION
     Route: 042
     Dates: start: 20040119
  12. ETHANOL [Suspect]

REACTIONS (1)
  - SUICIDE ATTEMPT [None]
